FAERS Safety Report 23612058 (Version 1)
Quarter: 2024Q1

REPORT INFORMATION
  Report Type: Spontaneous
  Country: FR (occurrence: FR)
  Receive Date: 20240308
  Receipt Date: 20240308
  Transmission Date: 20240410
  Serious: Yes (Other)
  Sender: FDA-Public Use
  Company Number: FR-INCYTE CORPORATION-2024IN001911

PATIENT

DRUGS (1)
  1. PEMAZYRE [Suspect]
     Active Substance: PEMIGATINIB
     Indication: Cholangiocarcinoma
     Dosage: 13.5 MILLIGRAM, QD. 14D/21
     Route: 048
     Dates: start: 20230826

REACTIONS (7)
  - Ulcerative keratitis [Recovering/Resolving]
  - Serous retinal detachment [Unknown]
  - Visual acuity reduced [Recovering/Resolving]
  - Fatigue [Unknown]
  - Nail toxicity [Unknown]
  - Diarrhoea [Unknown]
  - Mucosal inflammation [Unknown]

NARRATIVE: CASE EVENT DATE: 20240124
